FAERS Safety Report 6704912-5 (Version None)
Quarter: 2010Q2

REPORT INFORMATION
  Report Type: 
  Country: None (occurrence: None)
  Receive Date: 20100430
  Receipt Date: 20100201
  Transmission Date: 20101027
  Serious: No
  Sender: FDA-Public Use
  Company Number: US-ASTRAZENECA-2010SE04355

PATIENT
  Age: 47 Year
  Sex: Female

DRUGS (2)
  1. NEXIUM [Suspect]
     Route: 048
  2. UNSPECIFIED [Concomitant]

REACTIONS (2)
  - ABDOMINAL PAIN [None]
  - ILL-DEFINED DISORDER [None]
